FAERS Safety Report 21861968 (Version 1)
Quarter: 2023Q1

REPORT INFORMATION
  Report Type: Spontaneous
  Country: US (occurrence: US)
  Receive Date: 20230113
  Receipt Date: 20230113
  Transmission Date: 20230418
  Serious: No
  Sender: FDA-Public Use
  Company Number: US-009507513-2301USA004816

PATIENT
  Age: 9 Month
  Sex: Female

DRUGS (4)
  1. TEMODAR [Suspect]
     Active Substance: TEMOZOLOMIDE
     Indication: Neuroblastoma
     Route: 037
  2. IODINE (131I) OMBURTAMAB [Concomitant]
     Indication: Neuroblastoma
     Route: 037
  3. IRINOTECAN [Concomitant]
     Active Substance: IRINOTECAN
     Indication: Neuroblastoma
     Route: 037
  4. NAXITAMAB [Concomitant]
     Active Substance: NAXITAMAB
     Indication: Neuroblastoma

REACTIONS (1)
  - Product use in unapproved indication [Unknown]
